FAERS Safety Report 5954402-2 (Version None)
Quarter: 2008Q4

REPORT INFORMATION
  Report Type: 
  Country: None (occurrence: None)
  Receive Date: 20081113
  Receipt Date: 20081113
  Transmission Date: 20090506
  Serious: Yes (Other)
  Sender: FDA-Public Use
  Company Number: None

PATIENT
  Age: 45 Year
  Sex: Male
  Weight: 111.1313 kg

DRUGS (2)
  1. PAROXETINE HCL [Suspect]
     Indication: ANXIETY
     Dosage: 20MG DAILY PO
     Route: 048
     Dates: start: 20071215, end: 20081108
  2. PAROXETINE HCL [Suspect]
     Indication: DEPRESSION
     Dosage: 20MG DAILY PO
     Route: 048
     Dates: start: 20071215, end: 20081108

REACTIONS (7)
  - ACTIVITIES OF DAILY LIVING IMPAIRED [None]
  - DIARRHOEA [None]
  - DISCOMFORT [None]
  - IMPAIRED DRIVING ABILITY [None]
  - NAUSEA [None]
  - PARAESTHESIA [None]
  - VERTIGO [None]
